FAERS Safety Report 5199636-2 (Version None)
Quarter: 2007Q1

REPORT INFORMATION
  Report Type: 
  Country: None (occurrence: None)
  Receive Date: 20070103
  Receipt Date: 20070103
  Transmission Date: 20070707
  Serious: Yes (Hospitalization)
  Sender: FDA-Public Use
  Company Number: None

PATIENT
  Sex: Male
  Weight: 125.9185 kg

DRUGS (14)
  1. CETUXIMAB 100 MG -2 MG/ ML- IMCLONE SYSTEMS INCORPORATED [Suspect]
     Indication: MULTIPLE MYELOMA
     Dosage: 250 MG/M2  ONCE WEEKLY  IV DRIP
     Route: 041
     Dates: start: 20061222, end: 20061229
  2. GLIPIZIDE [Concomitant]
  3. FUROSEMIDE [Concomitant]
  4. WARFARIN SODIUM [Concomitant]
  5. PROMETHAZINE [Concomitant]
  6. ESZOPICLONE [Concomitant]
  7. METOCLOPRAMIDE [Concomitant]
  8. DIGOXIN [Concomitant]
  9. SPIRONOLACTONE [Concomitant]
  10. POTASSIUM CHLORIDE [Concomitant]
  11. IRBESARTAN [Concomitant]
  12. VITAMIN B6 [Concomitant]
  13. OXYCODONE HCL [Concomitant]
  14. TAMSULOSIN HCL [Concomitant]

REACTIONS (2)
  - DIARRHOEA [None]
  - VOMITING [None]
